FAERS Safety Report 16380790 (Version 1)
Quarter: 2019Q2

REPORT INFORMATION
  Report Type: Report from Study
  Country: US (occurrence: US)
  Receive Date: 20190601
  Receipt Date: 20190601
  Transmission Date: 20190711
  Serious: Yes (Death, Hospitalization, Other)
  Sender: FDA-Public Use
  Company Number: US-BRISTOL-MYERS SQUIBB COMPANY-BMS-2019-053719

PATIENT
  Age: 64 Year
  Sex: Male
  Weight: 75.28 kg

DRUGS (3)
  1. TRABECTEDIN [Suspect]
     Active Substance: TRABECTEDIN
     Indication: MYXOFIBROSARCOMA
     Dosage: 2.3 MILLIGRAM, Q3WK
     Route: 042
     Dates: start: 20190523
  2. IPILIMUMAB [Suspect]
     Active Substance: IPILIMUMAB
     Indication: MYXOFIBROSARCOMA
     Dosage: 77 MILLIGRAM, Q3MO
     Route: 042
     Dates: start: 20190515
  3. NIVOLUMAB [Suspect]
     Active Substance: NIVOLUMAB
     Indication: MYXOFIBROSARCOMA
     Dosage: 232 MILLIGRAM, Q2WK
     Route: 042
     Dates: start: 20190515

REACTIONS (2)
  - Mental status changes [Unknown]
  - Acute respiratory failure [Fatal]

NARRATIVE: CASE EVENT DATE: 20190525
